FAERS Safety Report 5258222-6 (Version None)
Quarter: 2007Q1

REPORT INFORMATION
  Report Type: 
  Country: None (occurrence: None)
  Receive Date: 20061117
  Receipt Date: 20060418
  Transmission Date: 20070707
  Serious: Yes (Hospitalization)
  Sender: FDA-Public Use
  Company Number: US-JNJFOC-20060400784

PATIENT
  Age: 56 Year
  Sex: Male
  Weight: 109.7705 kg

DRUGS (2)
  1. LEVAQUIN [Suspect]
     Indication: SINUSITIS
     Dosage: 500 MG, 1 IN  1 DAY, ORAL
     Route: 048
     Dates: start: 20060301, end: 20060301
  2. BETAPACE [Concomitant]

REACTIONS (1)
  - ATRIAL FIBRILLATION [None]
